FAERS Safety Report 16092526 (Version 2)
Quarter: 2019Q2

REPORT INFORMATION
  Report Type: Spontaneous
  Country: GB (occurrence: GB)
  Receive Date: 20190319
  Receipt Date: 20190412
  Transmission Date: 20190711
  Serious: Yes (Hospitalization, Other)
  Sender: FDA-Public Use
  Company Number: PHHY2019GB058982

PATIENT
  Sex: Female

DRUGS (2)
  1. DABRAFENIB [Suspect]
     Active Substance: DABRAFENIB
     Indication: PRODUCT USED FOR UNKNOWN INDICATION
     Dosage: UNK
     Route: 065
  2. TRAMETINIB [Suspect]
     Active Substance: TRAMETINIB
     Indication: PRODUCT USED FOR UNKNOWN INDICATION
     Dosage: UNK
     Route: 065

REACTIONS (9)
  - Weight bearing difficulty [Unknown]
  - Neuropathic muscular atrophy [Unknown]
  - Sensory disturbance [Unknown]
  - Peripheral motor neuropathy [Unknown]
  - Mobility decreased [Unknown]
  - Dysarthria [Unknown]
  - Aphasia [Unknown]
  - Peripheral sensory neuropathy [Unknown]
  - Nerve conduction studies abnormal [Unknown]
